FAERS Safety Report 17902876 (Version 8)
Quarter: 2024Q1

REPORT INFORMATION
  Report Type: Spontaneous
  Country: JP (occurrence: JP)
  Receive Date: 20200617
  Receipt Date: 20240117
  Transmission Date: 20240409
  Serious: Yes (Hospitalization, Disabling, Other)
  Sender: FDA-Public Use
  Company Number: JP-BRISTOL-MYERS SQUIBB COMPANY-BMS-2020-047532

PATIENT
  Age: 62 Year
  Sex: Male
  Weight: 50.5 kg

DRUGS (2)
  1. OPDIVO [Suspect]
     Active Substance: NIVOLUMAB
     Indication: Gastric cancer
     Dosage: 240 MG, Q3W
     Route: 041
     Dates: start: 20190501, end: 20200527
  2. OPDIVO [Suspect]
     Active Substance: NIVOLUMAB
     Dosage: 240 MG, Q3W
     Route: 041
     Dates: start: 20200715

REACTIONS (5)
  - Type 1 diabetes mellitus [Recovering/Resolving]
  - Immune-mediated hypothyroidism [Not Recovered/Not Resolved]
  - Altered state of consciousness [Unknown]
  - Diabetic ketoacidosis [Unknown]
  - Off label use [Unknown]

NARRATIVE: CASE EVENT DATE: 20191218
